FAERS Safety Report 14357183 (Version 1)
Quarter: 2018Q1

REPORT INFORMATION
  Report Type: Spontaneous
  Country: RU (occurrence: RU)
  Receive Date: 20180105
  Receipt Date: 20180105
  Transmission Date: 20180509
  Serious: No
  Sender: FDA-Public Use
  Company Number: RU-B. BRAUN MEDICAL INC.-2039538

PATIENT
  Age: 30 Year
  Sex: Male
  Weight: 80 kg

DRUGS (20)
  1. CEFTRIAXONE. [Concomitant]
     Active Substance: CEFTRIAXONE
  2. STEROFUNDIN ISOTONIC [Concomitant]
     Route: 042
  3. KETOPROFEN. [Concomitant]
     Active Substance: KETOPROFEN
  4. SODIUM CHLORIDE INJECTIONS USP 0264-7800-00 0264-7800-10 [Suspect]
     Active Substance: SODIUM CHLORIDE
     Indication: PNEUMONIA
     Route: 042
     Dates: start: 20170817, end: 20170820
  5. RINGER^S SOLUTION (KCL, CACL, NACL SOLUTION) [Concomitant]
     Route: 042
  6. POTASSIUM CHLORIDE. [Concomitant]
     Active Substance: POTASSIUM CHLORIDE
     Route: 042
  7. KETAMINE HYDROCHLORIDE. [Concomitant]
     Active Substance: KETAMINE HYDROCHLORIDE
  8. GELATIN [Concomitant]
     Active Substance: GELATIN
     Route: 042
  9. MAGNESIUM SULFATE. [Concomitant]
     Active Substance: MAGNESIUM SULFATE
     Route: 042
  10. PANTOPRAZOLE SODIUM. [Concomitant]
     Active Substance: PANTOPRAZOLE SODIUM
  11. DEXTROSE. [Concomitant]
     Active Substance: DEXTROSE
     Route: 042
  12. TRIMEPERIDINE [Concomitant]
     Active Substance: TRIMEPERIDINE
  13. LYSINE AESCINAT (AESCINILYSINAS) [Concomitant]
  14. FUROSEMIDE. [Concomitant]
     Active Substance: FUROSEMIDE
     Route: 042
  15. HYDROXYETHYL STARTCH 200 [Concomitant]
     Route: 042
  16. TRAMADOL. [Concomitant]
     Active Substance: TRAMADOL
  17. SODIUM ENOXAPARIN [Concomitant]
     Active Substance: ENOXAPARIN SODIUM
  18. OMEPRAZOLE. [Concomitant]
     Active Substance: OMEPRAZOLE
  19. HEPARIN SODIUM. [Concomitant]
     Active Substance: HEPARIN SODIUM
  20. FENTANYL. [Concomitant]
     Active Substance: FENTANYL

REACTIONS (2)
  - Pyrexia [Recovered/Resolved]
  - Urticaria [Recovered/Resolved]

NARRATIVE: CASE EVENT DATE: 20170820
